FAERS Safety Report 6886430-7 (Version None)
Quarter: 2010Q3

REPORT INFORMATION
  Report Type: 
  Country: None (occurrence: None)
  Receive Date: 20100729
  Receipt Date: 20090627
  Transmission Date: 20110219
  Serious: No
  Sender: FDA-Public Use
  Company Number: US-PFIZER INC-2009210713

PATIENT

DRUGS (2)
  1. CELEBREX [Suspect]
     Indication: OSTEOARTHRITIS
     Dosage: 200 UNK, 2X/DAY
  2. ZOLOFT [Suspect]
     Dosage: UNK

REACTIONS (4)
  - DIARRHOEA [None]
  - HEADACHE [None]
  - MUSCLE TWITCHING [None]
  - NAUSEA [None]
